FAERS Safety Report 10022227 (Version 2)
Quarter: 2014Q2

REPORT INFORMATION
  Report Type: Spontaneous
  Country: CA (occurrence: CA)
  Receive Date: 20140319
  Receipt Date: 20140513
  Transmission Date: 20141212
  Serious: Yes (Other)
  Sender: FDA-Public Use
  Company Number: CA-SA-2014SA032801

PATIENT
  Age: 69 Year
  Sex: Male

DRUGS (2)
  1. ONCOTICE [Suspect]
     Indication: BLADDER CANCER
     Route: 043
     Dates: start: 20140412
  2. DICLOFENAC SODIUM/MISOPROSTOL [Concomitant]
     Indication: OSTEOARTHRITIS
     Route: 065

REACTIONS (5)
  - Bovine tuberculosis [Recovered/Resolved]
  - Granulomatous liver disease [Recovered/Resolved]
  - Granuloma [Recovered/Resolved]
  - Pyrexia [Recovered/Resolved]
  - Chills [Recovered/Resolved]
